FAERS Safety Report 8432217-3 (Version None)
Quarter: 2012Q2

REPORT INFORMATION
  Report Type: 
  Country: None (occurrence: None)
  Receive Date: 20120613
  Receipt Date: 20120605
  Transmission Date: 20120825
  Serious: Yes (Hospitalization)
  Sender: FDA-Public Use
  Company Number: US-BRISTOL-MYERS SQUIBB COMPANY-16664468

PATIENT
  Sex: Female

DRUGS (4)
  1. PROZAC WEEKLY [Suspect]
     Indication: DISSOCIATIVE IDENTITY DISORDER
  2. PROZAC WEEKLY [Suspect]
     Indication: DISSOCIATIVE DISORDER
  3. ABILIFY [Suspect]
     Dosage: ALSO TAKEN 2 MG
     Dates: start: 20120501
  4. PROZAC WEEKLY [Suspect]
     Indication: DEPRESSION

REACTIONS (1)
  - PSYCHOTIC DISORDER [None]
